FAERS Safety Report 7399716-7 (Version None)
Quarter: 2011Q2

REPORT INFORMATION
  Report Type: 
  Country: None (occurrence: None)
  Receive Date: 20110407
  Receipt Date: 20110324
  Transmission Date: 20111010
  Serious: Yes (Hospitalization)
  Sender: FDA-Public Use
  Company Number: JP-ROCHE-763511

PATIENT
  Sex: Male
  Weight: 56 kg

DRUGS (11)
  1. RANITAC [Concomitant]
     Route: 048
     Dates: start: 20090519
  2. HYDROXOCOBALAMIN ACETATE [Concomitant]
     Dosage: DRUG: FRESMIN-S, NOTE: TWICE
     Route: 030
     Dates: start: 20101001, end: 20101203
  3. BAKTAR [Concomitant]
     Route: 048
     Dates: start: 20090522, end: 20101224
  4. PARAPLATIN [Concomitant]
     Route: 041
     Dates: start: 20100916, end: 20101214
  5. ALIMTA [Suspect]
     Indication: LUNG ADENOCARCINOMA METASTATIC
     Route: 041
     Dates: start: 20100916, end: 20110120
  6. PREDNISOLONE [Concomitant]
     Route: 048
     Dates: start: 20090519
  7. AVASTIN [Suspect]
     Indication: LUNG ADENOCARCINOMA METASTATIC
     Dosage: NOTE: 820-850 MG AND 4-5 EVERY WEEKS
     Route: 041
     Dates: start: 20100916, end: 20110120
  8. MOBIC [Concomitant]
     Route: 048
     Dates: start: 20091202, end: 20091224
  9. BONALON [Concomitant]
     Route: 048
     Dates: start: 20100126
  10. PANVITAN [Concomitant]
     Route: 048
     Dates: start: 20100909
  11. BLOPRESS [Concomitant]
     Route: 048
     Dates: start: 20101214

REACTIONS (1)
  - INTERSTITIAL LUNG DISEASE [None]
